FAERS Safety Report 8950576 (Version 1)
Quarter: 2012Q4

REPORT INFORMATION
  Report Type: 
  Country: US (occurrence: US)
  Receive Date: 20121206
  Receipt Date: 20121206
  Transmission Date: 20130627
  Serious: No
  Sender: FDA-Public Use
  Company Number: US-009507513-1212USA001743

PATIENT
  Age: 27 Year
  Sex: Female
  Weight: 112.2 kg

DRUGS (2)
  1. IMPLANON [Suspect]
     Indication: CONTRACEPTION
     Dosage: 1 DF, UNK
     Dates: start: 20121204, end: 20121204
  2. IMPLANON [Suspect]
     Dosage: UNK
     Dates: start: 20121204

REACTIONS (2)
  - Device difficult to use [Unknown]
  - Needle issue [Unknown]
